FAERS Safety Report 18018397 (Version 8)
Quarter: 2024Q1

REPORT INFORMATION
  Report Type: Spontaneous
  Country: US (occurrence: US)
  Receive Date: 20200714
  Receipt Date: 20240123
  Transmission Date: 20240410
  Serious: Yes (Other)
  Sender: FDA-Public Use
  Company Number: US-PFIZER INC-2020068802

PATIENT
  Age: 74 Year
  Sex: Female
  Weight: 84.354 kg

DRUGS (1)
  1. PREMARIN [Suspect]
     Active Substance: ESTROGENS, CONJUGATED
     Dosage: 0.625 MG TWICE A WEEK (OFF 5 DAYS; REPEAT CYCLE)
     Route: 067

REACTIONS (2)
  - Cervix carcinoma [Unknown]
  - Off label use [Unknown]
